FAERS Safety Report 23856277 (Version 1)
Quarter: 2024Q2

REPORT INFORMATION
  Report Type: Spontaneous
  Country: JP (occurrence: JP)
  Receive Date: 20240515
  Receipt Date: 20240515
  Transmission Date: 20240716
  Serious: Yes (Hospitalization, Other)
  Sender: FDA-Public Use
  Company Number: JP-GLANDPHARMA-JP-2024GLNLIT00126

PATIENT
  Age: 69 Year
  Sex: Male
  Weight: 70 kg

DRUGS (8)
  1. HEPARIN SODIUM [Suspect]
     Active Substance: HEPARIN SODIUM
     Indication: Cardiac ventricular thrombosis
     Route: 042
  2. HEPARIN SODIUM [Suspect]
     Active Substance: HEPARIN SODIUM
     Route: 042
  3. HEPARIN SODIUM [Suspect]
     Active Substance: HEPARIN SODIUM
     Route: 065
  4. ARGATROBAN [Suspect]
     Active Substance: ARGATROBAN
     Indication: Thrombocytosis
     Route: 042
  5. WARFARIN [Suspect]
     Active Substance: WARFARIN
     Indication: Thrombocytosis
     Route: 048
  6. ASPIRIN [Suspect]
     Active Substance: ASPIRIN
     Indication: Thrombocytosis
     Route: 048
  7. HYDROXYUREA [Suspect]
     Active Substance: HYDROXYUREA
     Indication: Thrombocytosis
     Route: 065
  8. NAFAMOSTAT [Suspect]
     Active Substance: NAFAMOSTAT
     Indication: Thrombocytosis
     Route: 065

REACTIONS (2)
  - Cardiac tamponade [Recovered/Resolved]
  - Drug ineffective [Unknown]
